FAERS Safety Report 4640159-4 (Version None)
Quarter: 2005Q2

REPORT INFORMATION
  Report Type: 
  Country: None (occurrence: None)
  Receive Date: 20050419
  Receipt Date: 20050405
  Transmission Date: 20051028
  Serious: No
  Sender: FDA-Public Use
  Company Number: TPA2005A00385

PATIENT
  Age: 68 Year
  Sex: Female
  Weight: 81.6475 kg

DRUGS (6)
  1. ACTOS [Suspect]
     Indication: BLOOD GLUCOSE
     Dosage: 45 MG, 1 IN 1 D, PER ORAL; 15 MG, 1 IN 1 D, PER ORAL
     Route: 048
     Dates: start: 20030405
  2. ACTOS [Suspect]
     Indication: BLOOD GLUCOSE
     Dosage: 45 MG, 1 IN 1 D, PER ORAL; 15 MG, 1 IN 1 D, PER ORAL
     Route: 048
     Dates: start: 20030405
  3. GLUCOTROL XL [Concomitant]
  4. SYNTHROID [Concomitant]
  5. IBUPROFEN [Concomitant]
  6. LIPITOR [Concomitant]

REACTIONS (1)
  - INCORRECT DOSE ADMINISTERED [None]
